FAERS Safety Report 5524032-5 (Version None)
Quarter: 2007Q4

REPORT INFORMATION
  Report Type: 
  Country: None (occurrence: None)
  Receive Date: 20071121
  Receipt Date: 20071114
  Transmission Date: 20080405
  Serious: Yes (Hospitalization)
  Sender: FDA-Public Use
  Company Number: IT-BOEHRINGER INGELHEIM PHARMACEUTICALS, INC.-2007-IT-00361IT

PATIENT
  Sex: Female

DRUGS (10)
  1. CLONIDINE HCL [Suspect]
     Indication: ESSENTIAL HYPERTENSION
     Route: 048
     Dates: start: 20070101, end: 20070731
  2. CLONIDINE HCL [Suspect]
     Route: 048
     Dates: start: 20070801, end: 20070808
  3. RAMIPRIL [Concomitant]
     Indication: ESSENTIAL HYPERTENSION
  4. IPERTEN [Concomitant]
     Indication: ESSENTIAL HYPERTENSION
  5. LASIX [Concomitant]
     Indication: RENAL FAILURE CHRONIC
  6. NOVONORM [Concomitant]
     Indication: DIABETES MELLITUS
  7. ASPIRIN [Concomitant]
  8. FERRO GRAD C [Concomitant]
     Indication: ANAEMIA
  9. ESKIM [Concomitant]
  10. MAALOX [Concomitant]

REACTIONS (3)
  - ATRIAL FIBRILLATION [None]
  - ATRIOVENTRICULAR BLOCK COMPLETE [None]
  - TACHYARRHYTHMIA [None]
